FAERS Safety Report 13003969 (Version 1)
Quarter: 2016Q4

REPORT INFORMATION
  Report Type: Spontaneous
  Country: NL (occurrence: NL)
  Receive Date: 20161206
  Receipt Date: 20161206
  Transmission Date: 20170207
  Serious: Yes (Other)
  Sender: FDA-Public Use
  Company Number: NL-ASTRAZENECA-2016SF26445

PATIENT
  Age: 738 Month
  Sex: Female
  Weight: 97 kg

DRUGS (1)
  1. METOPROLOL SUCCINATE. [Suspect]
     Active Substance: METOPROLOL SUCCINATE
     Indication: HYPERTENSION
     Route: 048
     Dates: start: 201606, end: 20161115

REACTIONS (5)
  - Tinnitus [Unknown]
  - Deafness [Unknown]
  - Fatigue [Unknown]
  - Hyperhidrosis [Unknown]
  - Weight increased [Unknown]

NARRATIVE: CASE EVENT DATE: 201606
